FAERS Safety Report 25894226 (Version 2)
Quarter: 2025Q4

REPORT INFORMATION
  Report Type: Spontaneous
  Country: US (occurrence: US)
  Receive Date: 20251008
  Receipt Date: 20251017
  Transmission Date: 20260117
  Serious: Yes (Hospitalization)
  Sender: ROCHE
  Company Number: US-ROCHE-10000401818

PATIENT
  Age: 53 Year
  Sex: Female

DRUGS (8)
  1. ITOVEBI [Suspect]
     Active Substance: INAVOLISIB
     Indication: Breast cancer metastatic
     Route: 048
     Dates: start: 202508, end: 202509
  2. ITOVEBI [Suspect]
     Active Substance: INAVOLISIB
     Route: 065
     Dates: start: 20251012
  3. ITOVEBI [Suspect]
     Active Substance: INAVOLISIB
     Route: 065
  4. LANTUS [Concomitant]
     Active Substance: INSULIN GLARGINE
     Dates: start: 202509
  5. FULVESTRANT [Concomitant]
     Active Substance: FULVESTRANT
  6. PALBOCICLIB [Concomitant]
     Active Substance: PALBOCICLIB
     Dosage: 125
  7. OXYCODONE [Concomitant]
     Active Substance: OXYCODONE
  8. MS CONTIN [Concomitant]
     Active Substance: MORPHINE SULFATE

REACTIONS (4)
  - Hyperglycaemia [Recovered/Resolved]
  - Weight decreased [Recovered/Resolved]
  - Diarrhoea [Recovered/Resolved]
  - Decreased appetite [Recovered/Resolved]

NARRATIVE: CASE EVENT DATE: 20250801
